FAERS Safety Report 5825570-8 (Version None)
Quarter: 2008Q3

REPORT INFORMATION
  Report Type: 
  Country: None (occurrence: None)
  Receive Date: 20080725
  Receipt Date: 20080725
  Transmission Date: 20090109
  Serious: Yes (Hospitalization)
  Sender: FDA-Public Use
  Company Number: None

PATIENT
  Sex: Male
  Weight: 65 kg

DRUGS (4)
  1. CYCLOPHOSPHAMIDE [Suspect]
     Dosage: 1350 MG
  2. DOXIL [Suspect]
     Dosage: 72 MG
  3. PREDNISONE [Suspect]
     Dosage: 500 MG
  4. RITUXIMAB (MOAB C2B8 ANTI CD20, CHIMERIC) [Suspect]
     Dosage: 675 MG

REACTIONS (10)
  - ABSCESS [None]
  - BACTERIAL INFECTION [None]
  - BLOOD CULTURE POSITIVE [None]
  - DIARRHOEA [None]
  - DISEASE PROGRESSION [None]
  - FEBRILE NEUTROPENIA [None]
  - IMMUNOSUPPRESSION [None]
  - LYMPHOMA [None]
  - POSTOPERATIVE ADHESION [None]
  - SMALL INTESTINAL OBSTRUCTION [None]
